FAERS Safety Report 25386479 (Version 2)
Quarter: 2025Q2

REPORT INFORMATION
  Report Type: Spontaneous
  Country: GB (occurrence: GB)
  Receive Date: 20250602
  Receipt Date: 20250610
  Transmission Date: 20250716
  Serious: Yes (Hospitalization, Other)
  Sender: MYLAN
  Company Number: GB-MYLANLABS-2025M1023985

PATIENT
  Sex: Male

DRUGS (1)
  1. CLOZAPINE [Suspect]
     Active Substance: CLOZAPINE
     Indication: Schizophrenia

REACTIONS (6)
  - Nephrectomy [Unknown]
  - Gastrointestinal surgery [Unknown]
  - Circulatory collapse [Unknown]
  - Ileus paralytic [Not Recovered/Not Resolved]
  - Post procedural sepsis [Unknown]
  - Anaemia [Unknown]
